FAERS Safety Report 15035730 (Version 1)
Quarter: 2018Q2

REPORT INFORMATION
  Report Type: Spontaneous
  Country: US (occurrence: US)
  Receive Date: 20180529
  Receipt Date: 20180529
  Transmission Date: 20180711
  Serious: No
  Sender: FDA-Public Use
  Company Number: None

PATIENT
  Age: 48 Year
  Sex: Female

DRUGS (2)
  1. CIMZIA [Suspect]
     Active Substance: CERTOLIZUMAB PEGOL
  2. TRANS TRACKER F (HEAT) [Concomitant]
     Active Substance: DEVICE

REACTIONS (2)
  - Oedema peripheral [None]
  - Condition aggravated [None]

NARRATIVE: CASE EVENT DATE: 20180430
